FAERS Safety Report 13049089 (Version 1)
Quarter: 2016Q4

REPORT INFORMATION
  Report Type: Spontaneous
  Country: US (occurrence: US)
  Receive Date: 20161221
  Receipt Date: 20161221
  Transmission Date: 20170207
  Serious: No
  Sender: FDA-Public Use
  Company Number: US-ALVOGEN-2016-ALVOGEN-087217

PATIENT
  Age: 18 Year
  Sex: Female

DRUGS (1)
  1. REACT [Suspect]
     Active Substance: LEVONORGESTREL
     Indication: CONTRACEPTION
     Route: 048
     Dates: start: 20161107

REACTIONS (1)
  - Vaginal haemorrhage [Unknown]
